FAERS Safety Report 5271695-8 (Version None)
Quarter: 2007Q1

REPORT INFORMATION
  Report Type: 
  Country: None (occurrence: None)
  Receive Date: 20070321
  Receipt Date: 20070312
  Transmission Date: 20070707
  Serious: Yes (Hospitalization, Disabling, Other)
  Sender: FDA-Public Use
  Company Number: US-PFIZER INC-2006140300

PATIENT
  Sex: Male
  Weight: 107.5 kg

DRUGS (2)
  1. CELEBREX [Suspect]
     Indication: PAIN MANAGEMENT
     Route: 048
  2. CELEBREX [Suspect]
     Indication: MYALGIA

REACTIONS (4)
  - CARDIOMEGALY [None]
  - CEREBROVASCULAR ACCIDENT [None]
  - DEPRESSION [None]
  - MYOCARDIAL INFARCTION [None]
